FAERS Safety Report 21660107 (Version 1)
Quarter: 2022Q4

REPORT INFORMATION
  Report Type: Report from Study
  Country: US (occurrence: US)
  Receive Date: 20221130
  Receipt Date: 20221130
  Transmission Date: 20230113
  Serious: No
  Sender: FDA-Public Use
  Company Number: US-ABBVIE-4196400

PATIENT
  Age: 47 Year
  Sex: Female

DRUGS (2)
  1. HUMIRA [Suspect]
     Active Substance: ADALIMUMAB
     Indication: Uveitis
     Dosage: CF, FORM STRENGTH: 40 MG
     Route: 058
     Dates: start: 20221026
  2. HUMIRA [Suspect]
     Active Substance: ADALIMUMAB
     Dosage: CF, FORM STRENGTH: 40 MG
     Route: 058

REACTIONS (4)
  - Palpitations [Recovered/Resolved]
  - Injection site erythema [Unknown]
  - Injection site pruritus [Unknown]
  - Hypoaesthesia [Recovered/Resolved]

NARRATIVE: CASE EVENT DATE: 20221026
